FAERS Safety Report 4984191-X (Version None)
Quarter: 2006Q2

REPORT INFORMATION
  Report Type: 
  Country: None (occurrence: None)
  Receive Date: 20060427
  Receipt Date: 20060418
  Transmission Date: 20061013
  Serious: Yes (Disabling, Other)
  Sender: FDA-Public Use
  Company Number: US-JNJFOC-20060404957

PATIENT
  Sex: Male
  Weight: 117.94 kg

DRUGS (4)
  1. DURAGESIC-100 [Suspect]
     Route: 062
  2. LEXAPRO [Concomitant]
     Indication: DEPRESSION
     Route: 048
  3. ADVAIR DISKUS 100/50 [Concomitant]
     Route: 055
  4. ADVAIR DISKUS 100/50 [Concomitant]
     Dosage: ONE PUFF EVERY 12 HOURS
     Route: 055

REACTIONS (4)
  - BLINDNESS [None]
  - BLOOD CHOLESTEROL INCREASED [None]
  - CEREBROVASCULAR ACCIDENT [None]
  - HYPERTENSION [None]
